FAERS Safety Report 14134145 (Version 1)
Quarter: 2017Q4

REPORT INFORMATION
  Report Type: Report from Study
  Country: None (occurrence: US)
  Receive Date: 20171027
  Receipt Date: 20171027
  Transmission Date: 20180321
  Serious: Yes (Hospitalization, Other)
  Sender: FDA-Public Use
  Company Number: US-ABBVIE-17K-163-2096735-00

PATIENT
  Age: 53 Year
  Sex: Female

DRUGS (1)
  1. HUMIRA [Suspect]
     Active Substance: ADALIMUMAB
     Indication: RHEUMATOID ARTHRITIS
     Route: 058

REACTIONS (11)
  - Peripheral swelling [Recovering/Resolving]
  - Herpes zoster [Recovered/Resolved]
  - Scratch [Not Recovered/Not Resolved]
  - Road traffic accident [Not Recovered/Not Resolved]
  - Loss of consciousness [Recovering/Resolving]
  - Thrombosis [Recovering/Resolving]
  - Back injury [Not Recovered/Not Resolved]
  - Thrombosis [Recovered/Resolved]
  - Neck injury [Not Recovered/Not Resolved]
  - Road traffic accident [Not Recovered/Not Resolved]
  - Headache [Unknown]

NARRATIVE: CASE EVENT DATE: 20170703
